FAERS Safety Report 14472812 (Version 1)
Quarter: 2018Q1

REPORT INFORMATION
  Report Type: Report from Study
  Country: None (occurrence: US)
  Receive Date: 20180201
  Receipt Date: 20180201
  Transmission Date: 20180509
  Serious: Yes (Other)
  Sender: FDA-Public Use
  Company Number: US-ABBVIE-18K-163-2239855-00

PATIENT
  Age: 68 Year
  Sex: Male

DRUGS (1)
  1. HUMIRA [Suspect]
     Active Substance: ADALIMUMAB
     Indication: COLITIS ULCERATIVE
     Route: 058
     Dates: end: 20180116

REACTIONS (5)
  - Blood parathyroid hormone increased [Unknown]
  - Influenza [Not Recovered/Not Resolved]
  - Incoherent [Unknown]
  - Colitis ulcerative [Not Recovered/Not Resolved]
  - Blood calcium abnormal [Unknown]

NARRATIVE: CASE EVENT DATE: 2017
